FAERS Safety Report 8449182-5 (Version None)
Quarter: 2012Q2

REPORT INFORMATION
  Report Type: 
  Country: None (occurrence: None)
  Receive Date: 20120619
  Receipt Date: 20120613
  Transmission Date: 20120825
  Serious: Yes (Other)
  Sender: FDA-Public Use
  Company Number: 2012SP001651

PATIENT
  Age: 65 Year
  Sex: Female

DRUGS (4)
  1. ZETIA [Concomitant]
     Indication: BLOOD CHOLESTEROL INCREASED
  2. LISINOPRIL [Concomitant]
     Indication: HYPERTENSION
  3. ALL OTHER THERAPEUTIC PRODUCTS [Concomitant]
     Indication: PRODUCT USED FOR UNKNOWN INDICATION
  4. OMNARIS [Suspect]
     Indication: SEASONAL ALLERGY
     Route: 045
     Dates: end: 20120501

REACTIONS (2)
  - BORDERLINE GLAUCOMA [None]
  - INTRAOCULAR PRESSURE INCREASED [None]
